FAERS Safety Report 4969586-2 (Version None)
Quarter: 2006Q1

REPORT INFORMATION
  Report Type: 
  Country: None (occurrence: None)
  Receive Date: 20060127
  Receipt Date: 20041129
  Transmission Date: 20060701
  Serious: Yes (Other)
  Sender: FDA-Public Use
  Company Number: 04-11-1645

PATIENT
  Age: 53 Year
  Sex: Female

DRUGS (2)
  1. CLOZAPINE [Suspect]
     Indication: DEPRESSION
     Dosage: ORAL
     Route: 048
     Dates: start: 20040901, end: 20041108
  2. CLOZAPINE [Suspect]
     Indication: HALLUCINATION, AUDITORY
     Dosage: ORAL
     Route: 048
     Dates: start: 20040901, end: 20041108

REACTIONS (1)
  - AGRANULOCYTOSIS [None]
